FAERS Safety Report 10079095 (Version 2)
Quarter: 2014Q2

REPORT INFORMATION
  Report Type: Report from Study
  Country: US (occurrence: US)
  Receive Date: 20140415
  Receipt Date: 20140508
  Transmission Date: 20141212
  Serious: Yes (Other)
  Sender: FDA-Public Use
  Company Number: PHEH2014US007142

PATIENT
  Age: 43 Year
  Sex: Male

DRUGS (7)
  1. TASIGNA [Suspect]
     Indication: CHRONIC MYELOID LEUKAEMIA
     Dosage: 400 MG, BID
     Route: 048
     Dates: start: 20110921, end: 201110
  2. TASIGNA [Interacting]
     Dosage: 300 MG, UNK
     Route: 048
     Dates: start: 201111
  3. MORPHINE [Interacting]
     Indication: PAIN
     Dosage: 15 MG, BID FOR 07 DAYS
  4. LEXAPRO [Interacting]
     Indication: DEPRESSION
     Dosage: 20 MG, UNK
     Route: 048
  5. OXYCODONE [Concomitant]
     Indication: PAIN
     Dosage: 5 MG, Q4H
     Route: 048
     Dates: start: 20140414
  6. MIRTAZAPINE [Concomitant]
     Indication: DEPRESSION
     Dosage: 15 MG, UNK
     Route: 048
     Dates: start: 20121026
  7. NEURONTIN [Concomitant]
     Indication: PAIN
     Dosage: 400 MG, TID
     Route: 048
     Dates: start: 20130123

REACTIONS (6)
  - Sinusitis [Not Recovered/Not Resolved]
  - Sleep apnoea syndrome [Not Recovered/Not Resolved]
  - Snoring [Not Recovered/Not Resolved]
  - Rhinorrhoea [Not Recovered/Not Resolved]
  - Nasal congestion [Not Recovered/Not Resolved]
  - Drug interaction [Not Recovered/Not Resolved]
